FAERS Safety Report 18762724 (Version 2)
Quarter: 2021Q2

REPORT INFORMATION
  Report Type: Spontaneous
  Country: US (occurrence: US)
  Receive Date: 20210120
  Receipt Date: 20210421
  Transmission Date: 20210717
  Serious: No
  Sender: FDA-Public Use
  Company Number: US-INSMED, INC.-US-INS-20-02388

PATIENT
  Age: 82 Year
  Sex: Female

DRUGS (1)
  1. ARIKAYCE [Suspect]
     Active Substance: AMIKACIN
     Indication: MYCOBACTERIAL INFECTION
     Dosage: 590 MILLIGRAM
     Route: 055
     Dates: start: 20201125, end: 202011

REACTIONS (7)
  - Catheter site haemorrhage [Unknown]
  - Hypertension [Recovered/Resolved]
  - Nausea [Unknown]
  - Wheezing [Recovered/Resolved]
  - Central venous catheterisation [Unknown]
  - Headache [Recovered/Resolved]
  - Cough [Recovered/Resolved]

NARRATIVE: CASE EVENT DATE: 202011
